FAERS Safety Report 19686824 (Version 1)
Quarter: 2021Q3

REPORT INFORMATION
  Report Type: Spontaneous
  Country: US (occurrence: US)
  Receive Date: 20210811
  Receipt Date: 20210811
  Transmission Date: 20211014
  Serious: No
  Sender: FDA-Public Use
  Company Number: US-MEDEXUS PHARMA, INC.-2021MED00119

PATIENT
  Age: 46 Year
  Sex: Female
  Weight: 89.8 kg

DRUGS (2)
  1. RASUVO [Suspect]
     Active Substance: METHOTREXATE SODIUM
     Indication: RHEUMATOID ARTHRITIS
     Dosage: 15 MG, 1X/WEEK INJECTED AROUND HER STOMACH EVERY THURSDAY
  2. BOTOX [Concomitant]
     Active Substance: ONABOTULINUMTOXINA
     Indication: MIGRAINE
     Dosage: 200 UNITS, ONCE EVERY 3 MONTHS

REACTIONS (7)
  - Nausea [Recovered/Resolved]
  - Headache [Recovered/Resolved]
  - Migraine [Recovered/Resolved]
  - Product dose omission issue [Not Recovered/Not Resolved]
  - Poor quality product administered [Recovered/Resolved]
  - Product storage error [Recovered/Resolved]
  - Fatigue [Recovered/Resolved]

NARRATIVE: CASE EVENT DATE: 202103
